FAERS Safety Report 4433607-6 (Version None)
Quarter: 2004Q3

REPORT INFORMATION
  Report Type: 
  Country: None (occurrence: None)
  Receive Date: 20040826
  Receipt Date: 20040628
  Transmission Date: 20050211
  Serious: Yes (Hospitalization, Other)
  Sender: FDA-Public Use
  Company Number: PHNU2004DE02306

PATIENT
  Sex: Female

DRUGS (6)
  1. CLOZARIL [Suspect]
     Dosage: 75 MG/DAY
     Route: 048
     Dates: start: 19870101, end: 20040501
  2. CLOZARIL [Suspect]
     Dosage: 250 MG/DAY
     Route: 048
     Dates: start: 20040501
  3. CLOZARIL [Suspect]
     Dosage: UNKNOWN SMALL DOSAGE
     Route: 048
  4. VIOXX [Concomitant]
  5. PANTOPRAZOL [Concomitant]
  6. PIPAMPERONE [Concomitant]

REACTIONS (4)
  - PERICARDIAL EFFUSION [None]
  - PLEURAL EFFUSION [None]
  - POLYSEROSITIS [None]
  - TACHYCARDIA [None]
